FAERS Safety Report 19419855 (Version 1)
Quarter: 2021Q2

REPORT INFORMATION
  Report Type: Spontaneous
  Country: BR (occurrence: BR)
  Receive Date: 20210615
  Receipt Date: 20210615
  Transmission Date: 20210717
  Serious: Yes (Hospitalization)
  Sender: FDA-Public Use
  Company Number: BR-NOVOPROD-814027

PATIENT
  Age: 66 Year
  Sex: Female
  Weight: 34 kg

DRUGS (14)
  1. TRESIBA [Suspect]
     Active Substance: INSULIN DEGLUDEC
     Dosage: 9 IU
     Route: 065
  2. ROSUVASTATIN. [Concomitant]
     Active Substance: ROSUVASTATIN
     Indication: PRODUCT USED FOR UNKNOWN INDICATION
     Dosage: 20 MG
     Route: 065
  3. FIASP [Suspect]
     Active Substance: INSULIN ASPART
     Dosage: 7 IU, QD (BREAKFAST (2IU), LUNCH(1IU), DINNER(4IU))
     Route: 065
     Dates: start: 202010
  4. CALCIUM [Concomitant]
     Active Substance: CALCIUM
     Indication: PRODUCT USED FOR UNKNOWN INDICATION
     Dosage: UNK
     Route: 065
  5. TRESIBA [Suspect]
     Active Substance: INSULIN DEGLUDEC
     Indication: TYPE 1 DIABETES MELLITUS
     Dosage: 10 IU
     Route: 065
     Dates: start: 201412
  6. DENOSUMAB [Concomitant]
     Active Substance: DENOSUMAB
     Indication: PRODUCT USED FOR UNKNOWN INDICATION
     Dosage: 60 MG EVERY 6 MONTHS
     Route: 065
  7. FIASP [Suspect]
     Active Substance: INSULIN ASPART
     Indication: TYPE 1 DIABETES MELLITUS
     Dosage: BREAKFAST/LUNCH/DINNER ? BEDTIME (BETWEEN PARENTHESIS DOSE)
     Route: 065
  8. LEVEMIR [Suspect]
     Active Substance: INSULIN DETEMIR
     Indication: TYPE 1 DIABETES MELLITUS
     Dosage: UNK
     Route: 065
  9. LOSARTAN. [Concomitant]
     Active Substance: LOSARTAN
     Indication: PRODUCT USED FOR UNKNOWN INDICATION
     Dosage: 50 MG
     Route: 065
  10. LEVOTHYROXINE. [Concomitant]
     Active Substance: LEVOTHYROXINE
     Indication: HYPOTHYROIDISM
     Dosage: 25 ???G
     Route: 065
  11. FIASP [Suspect]
     Active Substance: INSULIN ASPART
     Dosage: 6 IU, QD (BREAKFAST (1IU), LUNCH(2IU), DINNER(3IU) )
     Route: 065
     Dates: start: 202010
  12. FIASP [Suspect]
     Active Substance: INSULIN ASPART
     Dosage: 8 IU, QD (BREAKFAST (1IU), LUNCH(3IU), DINNER(4IU) )
     Route: 065
     Dates: start: 202010
  13. VITAMIN D [COLECALCIFEROL] [Concomitant]
     Active Substance: CHOLECALCIFEROL
     Indication: PRODUCT USED FOR UNKNOWN INDICATION
     Dosage: UNK
     Route: 065
  14. ASA [Concomitant]
     Active Substance: ASPIRIN
     Indication: PRODUCT USED FOR UNKNOWN INDICATION
     Dosage: 100 MG
     Route: 065

REACTIONS (3)
  - Hyperglycaemia [Unknown]
  - Diabetic ketoacidosis [Unknown]
  - Hypoglycaemia [Unknown]
